FAERS Safety Report 5408662-7 (Version None)
Quarter: 2007Q3

REPORT INFORMATION
  Report Type: 
  Country: None (occurrence: None)
  Receive Date: 20070808
  Receipt Date: 20070730
  Transmission Date: 20080115
  Serious: Yes (Other)
  Sender: FDA-Public Use
  Company Number: DE-PFIZER INC-2007054945

PATIENT
  Sex: Female
  Weight: 56 kg

DRUGS (4)
  1. ATORVASTATIN CALCIUM [Suspect]
     Dosage: DAILY DOSE:20MG
     Route: 048
     Dates: start: 20000101, end: 20070711
  2. DULCOLAX [Concomitant]
     Route: 048
  3. JODID [Concomitant]
     Route: 048
     Dates: end: 20070701
  4. COLECALCIFEROL [Concomitant]
     Route: 048
     Dates: end: 20070701

REACTIONS (4)
  - ERYTHEMA [None]
  - EYELID OEDEMA [None]
  - MYALGIA [None]
  - SHOCK [None]
